FAERS Safety Report 8333302-7 (Version None)
Quarter: 2012Q1

REPORT INFORMATION
  Report Type: 
  Country: None (occurrence: None)
  Receive Date: 20120327
  Receipt Date: 20110413
  Transmission Date: 20120608
  Serious: Yes (Hospitalization)
  Sender: FDA-Public Use
  Company Number: PHHY2011US20225

PATIENT
  Age: 66 Year
  Sex: Female
  Weight: 71.7 kg

DRUGS (10)
  1. GLEEVEC [Suspect]
     Indication: GASTRIC CANCER
     Dosage: 400 MG, QD,ORAL
     Route: 048
     Dates: start: 20100605
  2. ATENOLOL [Concomitant]
  3. AUGMENTIN '125' [Concomitant]
  4. CRESTOR [Concomitant]
  5. ULTRACET [Concomitant]
  6. VICODIN [Concomitant]
  7. AMOXICILLIN [Concomitant]
  8. LEVSIN (HYOSCYAMINE SULFATE) [Concomitant]
  9. PROCHLORPERAZINE MALEATE [Concomitant]
  10. FLAGYL [Concomitant]

REACTIONS (7)
  - PRURITUS [None]
  - HAEMOGLOBIN DECREASED [None]
  - ABDOMINAL PAIN [None]
  - NASAL CONGESTION [None]
  - HEADACHE [None]
  - DIVERTICULITIS [None]
  - OESOPHAGEAL PAIN [None]
